FAERS Safety Report 7942226-6 (Version None)
Quarter: 2011Q4

REPORT INFORMATION
  Report Type: 
  Country: None (occurrence: None)
  Receive Date: 20111128
  Receipt Date: 20111114
  Transmission Date: 20120403
  Serious: Yes (Other)
  Sender: FDA-Public Use
  Company Number: US-ELI_LILLY_AND_COMPANY-US201110005542

PATIENT
  Sex: Male
  Weight: 37.188 kg

DRUGS (3)
  1. STRATTERA [Suspect]
     Indication: ATTENTION DEFICIT/HYPERACTIVITY DISORDER
     Dosage: 25 MG, QD
     Route: 048
     Dates: start: 20111017
  2. DIGOXIN [Concomitant]
     Dosage: 0.125 MG, BID
     Dates: start: 20111018
  3. DIGOXIN [Concomitant]
     Indication: SUPRAVENTRICULAR TACHYCARDIA
     Dosage: 1 DF, UNK

REACTIONS (2)
  - OFF LABEL USE [None]
  - SUPRAVENTRICULAR TACHYCARDIA [None]
